FAERS Safety Report 16874785 (Version 1)
Quarter: 2019Q4

REPORT INFORMATION
  Report Type: Spontaneous
  Country: FR (occurrence: FR)
  Receive Date: 20191001
  Receipt Date: 20191001
  Transmission Date: 20200122
  Serious: Yes (Hospitalization)
  Sender: FDA-Public Use
  Company Number: PHHY2019FR225218

PATIENT
  Age: 49 Year
  Sex: Female

DRUGS (6)
  1. METHYLPHENIDATE HYDROCHLORIDE. [Suspect]
     Active Substance: METHYLPHENIDATE HYDROCHLORIDE
     Indication: NARCOLEPSY
     Dosage: DAY 0
     Route: 065
     Dates: start: 201505, end: 20180428
  2. PITOLISANT [Interacting]
     Active Substance: PITOLISANT
     Indication: NARCOLEPSY
     Dosage: 18 MG, QD
     Route: 065
     Dates: start: 201709
  3. VENLAFAXINE [Interacting]
     Active Substance: VENLAFAXINE HYDROCHLORIDE
     Indication: CATAPLEXY
  4. PITOLISANT [Interacting]
     Active Substance: PITOLISANT
     Indication: CATAPLEXY
  5. METHYLPHENIDATE HYDROCHLORIDE. [Interacting]
     Active Substance: METHYLPHENIDATE HYDROCHLORIDE
     Indication: CATAPLEXY
  6. VENLAFAXINE [Interacting]
     Active Substance: VENLAFAXINE HYDROCHLORIDE
     Indication: NARCOLEPSY
     Dosage: DAY 0
     Route: 065
     Dates: start: 201505

REACTIONS (4)
  - Drug interaction [Recovered/Resolved]
  - Splenic infarction [Recovered/Resolved]
  - Abdominal pain upper [Unknown]
  - Product use in unapproved indication [Unknown]

NARRATIVE: CASE EVENT DATE: 20180428
